FAERS Safety Report 10297425 (Version 3)
Quarter: 2014Q3

REPORT INFORMATION
  Report Type: Report from Study
  Country: DE (occurrence: DE)
  Receive Date: 20140711
  Receipt Date: 20140812
  Transmission Date: 20150326
  Serious: Yes (Disabling)
  Sender: FDA-Public Use
  Company Number: PHHY2014DE057950

PATIENT
  Age: 66 Year
  Sex: Female
  Weight: 51 kg

DRUGS (8)
  1. SANDOSTATIN LAR DEPOT [Suspect]
     Active Substance: OCTREOTIDE ACETATE
     Indication: PANCREATIC NEUROENDOCRINE TUMOUR
     Dosage: 30 MG, PER MONTH
     Route: 030
     Dates: start: 201207
  2. SANDOSTATIN LAR DEPOT [Suspect]
     Active Substance: OCTREOTIDE ACETATE
     Dosage: 20 MG, PER MONTH
     Route: 030
  3. DECORTIN [Concomitant]
     Active Substance: PREDNISONE
     Indication: ARTHRALGIA
     Dosage: UNK, 2X PER DAY
     Route: 048
     Dates: start: 201301
  4. PLASTULEN [Concomitant]
     Indication: IRON DEFICIENCY
     Dosage: UNK, EVERY 3-4 DAYS
     Route: 048
     Dates: start: 201301
  5. JODID [Concomitant]
     Active Substance: IODINE
     Indication: THYROID DISORDER
     Dosage: 200 UKN, QD
     Route: 048
     Dates: start: 1978
  6. NEBILET [Concomitant]
     Active Substance: NEBIVOLOL
     Indication: BLOOD PRESSURE
     Dosage: 5 (2X0.5 QD)
     Route: 048
     Dates: start: 2009
  7. DEKRISTOL [Concomitant]
     Active Substance: CHOLECALCIFEROL
     Indication: OSTEOPOROSIS
     Dosage: 1 UKN, QW
     Route: 048
     Dates: start: 2012
  8. EUTHYROX [Concomitant]
     Active Substance: LEVOTHYROXINE SODIUM
     Indication: THYROID DISORDER
     Dosage: UNK UKN, QD
     Route: 048
     Dates: start: 1978

REACTIONS (5)
  - Diarrhoea [Not Recovered/Not Resolved]
  - Arthralgia [Recovering/Resolving]
  - Injection site haematoma [Recovered/Resolved]
  - Rheumatoid arthritis [Recovering/Resolving]
  - Iron deficiency [Unknown]

NARRATIVE: CASE EVENT DATE: 201207
